FAERS Safety Report 9223460 (Version 1)
Quarter: 2013Q2

REPORT INFORMATION
  Report Type: Spontaneous
  Country: US (occurrence: US)
  Receive Date: 20130410
  Receipt Date: 20130410
  Transmission Date: 20140414
  Serious: Yes (Hospitalization)
  Sender: FDA-Public Use
  Company Number: US-GILEAD-2013-0073152

PATIENT
  Age: 24 Year
  Sex: Female

DRUGS (1)
  1. LETAIRIS [Suspect]
     Indication: PRODUCT USED FOR UNKNOWN INDICATION
     Dosage: 5 MG, QD
     Dates: start: 20130314, end: 20130323

REACTIONS (3)
  - Lethargy [Unknown]
  - Mechanical ventilation [Not Recovered/Not Resolved]
  - Transplant evaluation [Not Recovered/Not Resolved]
